APPROVED DRUG PRODUCT: LEVOFLOXACIN
Active Ingredient: LEVOFLOXACIN
Strength: 500MG
Dosage Form/Route: TABLET;ORAL
Application: A076361 | Product #002 | TE Code: AB
Applicant: TEVA PHARMACEUTICALS USA INC
Approved: Jun 20, 2011 | RLD: No | RS: No | Type: RX